FAERS Safety Report 6342633-1 (Version None)
Quarter: 2009Q3

REPORT INFORMATION
  Report Type: 
  Country: None (occurrence: None)
  Receive Date: 20090908
  Receipt Date: 20090902
  Transmission Date: 20100115
  Serious: No
  Sender: FDA-Public Use
  Company Number: US-JNJFOC-20090901712

PATIENT
  Sex: Female
  Weight: 113.4 kg

DRUGS (4)
  1. DURAGESIC-100 [Suspect]
     Indication: BACK PAIN
     Route: 062
     Dates: start: 20070101
  2. TEGRETOL [Concomitant]
     Indication: CONVULSION
     Route: 048
  3. POTASSIUM CHLORIDE [Concomitant]
     Indication: BONE DISORDER
     Route: 048
  4. XENICAL [Concomitant]
     Indication: WEIGHT LOSS DIET
     Route: 048

REACTIONS (5)
  - DRUG ADMINISTERED AT INAPPROPRIATE SITE [None]
  - FALL [None]
  - INADEQUATE ANALGESIA [None]
  - PRODUCT QUALITY ISSUE [None]
  - WRONG TECHNIQUE IN DRUG USAGE PROCESS [None]
